FAERS Safety Report 10074956 (Version 1)
Quarter: 2014Q2

REPORT INFORMATION
  Report Type: Spontaneous
  Country: US (occurrence: US)
  Receive Date: 20140414
  Receipt Date: 20140414
  Transmission Date: 20141212
  Serious: No
  Sender: FDA-Public Use
  Company Number: US-BIOGENIDEC-2014BI027470

PATIENT
  Age: 57 Year
  Sex: Female

DRUGS (1)
  1. TECFIDERA [Suspect]
     Indication: MULTIPLE SCLEROSIS
     Route: 048
     Dates: start: 20130829

REACTIONS (6)
  - Nail discolouration [Not Recovered/Not Resolved]
  - Ingrowing nail [Recovered/Resolved]
  - Onychomycosis [Recovered/Resolved]
  - Exostosis [Recovered/Resolved]
  - Osteoarthritis [Not Recovered/Not Resolved]
  - Gastrointestinal disorder [Recovered/Resolved]
